FAERS Safety Report 18079534 (Version 1)
Quarter: 2020Q3

REPORT INFORMATION
  Report Type: Spontaneous
  Country: US (occurrence: US)
  Receive Date: 20200728
  Receipt Date: 20200728
  Transmission Date: 20201103
  Serious: Yes (Life-Threatening, Hospitalization, Other)
  Sender: FDA-Public Use
  Company Number: US-HIKMA PHARMACEUTICALS USA INC.-US-H14001-20-51777

PATIENT
  Age: 56 Year
  Sex: Male

DRUGS (4)
  1. PREDNISONE. [Suspect]
     Active Substance: PREDNISONE
     Indication: IMMUNOSUPPRESSION
     Route: 065
     Dates: start: 202001, end: 2020
  2. PREDNISONE. [Suspect]
     Active Substance: PREDNISONE
     Route: 065
     Dates: start: 2020
  3. TACROLIMUS. [Suspect]
     Active Substance: TACROLIMUS
     Indication: IMMUNOSUPPRESSION
     Route: 065
     Dates: start: 202001
  4. MYCOPHENOLATE MOFETIL. [Suspect]
     Active Substance: MYCOPHENOLATE MOFETIL
     Indication: IMMUNOSUPPRESSION
     Route: 065
     Dates: start: 202001, end: 2020

REACTIONS (17)
  - Corynebacterium infection [Unknown]
  - Hyperkalaemia [Unknown]
  - Respiratory distress [Unknown]
  - Stenotrophomonas infection [Unknown]
  - Pleural effusion [Unknown]
  - Staphylococcal bacteraemia [Unknown]
  - Fluid overload [Unknown]
  - Pneumonia klebsiella [Unknown]
  - Renal tubular necrosis [Unknown]
  - Polyomavirus viraemia [Unknown]
  - Pulmonary oedema [Unknown]
  - Urinoma [Unknown]
  - Leukocytosis [Unknown]
  - COVID-19 [Recovered/Resolved]
  - Staphylococcal infection [Unknown]
  - Enterococcal infection [Unknown]
  - Morganella infection [Unknown]

NARRATIVE: CASE EVENT DATE: 2020
